FAERS Safety Report 9400191 (Version 1)
Quarter: 2013Q3

REPORT INFORMATION
  Report Type: Spontaneous
  Country: US (occurrence: US)
  Receive Date: 20130715
  Receipt Date: 20130715
  Transmission Date: 20140515
  Serious: No
  Sender: FDA-Public Use
  Company Number: US-BAYER-2013-081900

PATIENT
  Age: 61 Year
  Sex: Female

DRUGS (2)
  1. CLIMARA PRO [Suspect]
     Indication: VULVOVAGINAL DRYNESS
     Dosage: UNK
     Route: 062
     Dates: start: 2013
  2. CLIMARA PRO [Suspect]
     Indication: OSTEOPENIA

REACTIONS (1)
  - Product adhesion issue [None]
